FAERS Safety Report 10069756 (Version 1)
Quarter: 2014Q2

REPORT INFORMATION
  Report Type: Spontaneous
  Country: US (occurrence: None)
  Receive Date: 20140409
  Receipt Date: 20140409
  Transmission Date: 20141212
  Serious: Yes (Life-Threatening, Hospitalization, Disabling)
  Sender: FDA-Public Use
  Company Number: None

PATIENT
  Age: 42 Year
  Sex: Female
  Weight: 81.65 kg

DRUGS (2)
  1. ANAPROX [Suspect]
     Indication: MENORRHAGIA
     Dosage: 1 TABLET 1000 MG 2 TABLETS AT ONSET TAKEN BY MOUTH
     Route: 048
     Dates: start: 20120930, end: 20130823
  2. ANAPROX [Suspect]
     Indication: DYSMENORRHOEA
     Dosage: 1 TABLET 1000 MG 2 TABLETS AT ONSET TAKEN BY MOUTH
     Route: 048
     Dates: start: 20120930, end: 20130823

REACTIONS (9)
  - Dysstasia [None]
  - Middle insomnia [None]
  - Abasia [None]
  - Movement disorder [None]
  - Intestinal perforation [None]
  - Peritonitis [None]
  - Impaired work ability [None]
  - Impaired self-care [None]
  - Weight decreased [None]
